FAERS Safety Report 25532114 (Version 2)
Quarter: 2025Q3

REPORT INFORMATION
  Report Type: Spontaneous
  Country: CA (occurrence: CA)
  Receive Date: 20250709
  Receipt Date: 20250916
  Transmission Date: 20251020
  Serious: Yes (Congenital Anomaly, Other)
  Sender: ASTELLAS
  Company Number: CA-ASTELLAS-2025-AER-036087

PATIENT

DRUGS (3)
  1. TACROLIMUS [Suspect]
     Active Substance: TACROLIMUS
     Indication: Product used for unknown indication
     Route: 064
  2. AZATHIOPRINE [Suspect]
     Active Substance: AZATHIOPRINE
     Indication: Product used for unknown indication
     Route: 064
  3. SIROLIMUS [Suspect]
     Active Substance: SIROLIMUS
     Indication: Product used for unknown indication
     Route: 064

REACTIONS (4)
  - Adactyly [Unknown]
  - Congenital musculoskeletal disorder of limbs [Unknown]
  - Frontonasal dysplasia [Unknown]
  - Maternal exposure during pregnancy [Unknown]
